FAERS Safety Report 7229004-0 (Version None)
Quarter: 2011Q1

REPORT INFORMATION
  Report Type: 
  Country: None (occurrence: None)
  Receive Date: 20110117
  Receipt Date: 20110104
  Transmission Date: 20110831
  Serious: Yes (Hospitalization, Other)
  Sender: FDA-Public Use
  Company Number: PHEH2009US13051

PATIENT
  Sex: Male

DRUGS (6)
  1. LOVASTATIN [Concomitant]
  2. CLOZAPINE [Suspect]
  3. COGENTIN [Concomitant]
     Dosage: 1.5 MG
  4. INDERAL [Concomitant]
     Dosage: 30 MG
  5. COLACE [Concomitant]
     Dosage: 200 MG
  6. ZYPREXA [Suspect]
     Indication: SCHIZOPHRENIA, PARANOID TYPE
     Dosage: 10 MG

REACTIONS (2)
  - CONVULSION [None]
  - FEELING ABNORMAL [None]
